FAERS Safety Report 16679249 (Version 2)
Quarter: 2019Q3

REPORT INFORMATION
  Report Type: Spontaneous
  Country: DE (occurrence: DE)
  Receive Date: 20190807
  Receipt Date: 20190820
  Transmission Date: 20191004
  Serious: Yes (Hospitalization)
  Sender: FDA-Public Use
  Company Number: DE-GLAXOSMITHKLINE-DE2019141972

PATIENT
  Sex: Female

DRUGS (5)
  1. CIPRO [Suspect]
     Active Substance: CIPROFLOXACIN HYDROCHLORIDE
     Indication: BRONCHITIS
     Dosage: UNK (2 PACKS)
     Route: 065
     Dates: start: 201902, end: 201903
  2. COTRIM [Suspect]
     Active Substance: SULFAMETHOXAZOLE\TRIMETHOPRIM
     Indication: CYSTITIS NONINFECTIVE
     Dosage: UNK
     Route: 065
     Dates: start: 201812
  3. CEFUROXIME AXETIL. [Suspect]
     Active Substance: CEFUROXIME AXETIL
     Indication: CYSTITIS NONINFECTIVE
     Dosage: UNK
     Route: 065
     Dates: start: 201904
  4. OFLOX [Suspect]
     Active Substance: OFLOXACIN
     Indication: CYSTITIS NONINFECTIVE
     Dosage: UNK (2 PACKUNGEN)
     Route: 065
     Dates: start: 201810
  5. OFLOX [Suspect]
     Active Substance: OFLOXACIN
     Dosage: UNK (2 PACKS)
     Route: 065
     Dates: start: 201812

REACTIONS (13)
  - Back pain [Unknown]
  - Fibromyalgia [Unknown]
  - Arthralgia [Unknown]
  - Pain in extremity [Unknown]
  - Tendon rupture [Unknown]
  - Tendon disorder [Unknown]
  - Presyncope [Unknown]
  - Anxiety [Unknown]
  - Musculoskeletal pain [Unknown]
  - Muscular weakness [Unknown]
  - Illusion [Unknown]
  - General physical condition decreased [Unknown]
  - Formication [Unknown]

NARRATIVE: CASE EVENT DATE: 2019
